FAERS Safety Report 8583518-X (Version None)
Quarter: 2012Q3

REPORT INFORMATION
  Report Type: 
  Country: None (occurrence: None)
  Receive Date: 20120809
  Receipt Date: 20120802
  Transmission Date: 20120928
  Serious: Yes (Disabling, Other)
  Sender: FDA-Public Use
  Company Number: PHHY2012GB066745

PATIENT
  Age: 72 Year
  Sex: Female
  Weight: 71.66 kg

DRUGS (7)
  1. SIMVASTATIN [Suspect]
     Indication: HYPERCHOLESTEROLAEMIA
     Dosage: 40 MG, UNK
     Route: 048
  2. ASPIRIN [Concomitant]
  3. ATORVASTATIN [Suspect]
     Dosage: 40 MG, UNK
     Route: 048
  4. AMLODIPINE [Concomitant]
  5. BENDROFLUMETHIAZIDE [Concomitant]
  6. PERINDOPRIL ERBUMINE [Concomitant]
  7. PERSANTINE [Concomitant]

REACTIONS (3)
  - ARTHRITIS [None]
  - AMNESIA [None]
  - PAIN IN EXTREMITY [None]
